FAERS Safety Report 8892418 (Version 1)
Quarter: 2012Q4

REPORT INFORMATION
  Report Type: 
  Country: US (occurrence: US)
  Receive Date: 20121107
  Receipt Date: 20121107
  Transmission Date: 20130627
  Serious: No
  Sender: FDA-Public Use
  Company Number: US-AMGEN-USASP2011057227

PATIENT
  Age: 65 Year

DRUGS (17)
  1. ENBREL [Suspect]
     Indication: PRODUCT USED FOR UNKNOWN INDICATION
     Dosage: 25 mg, 2 times/wk
     Route: 058
     Dates: start: 20111005
  2. ARTHROTEC [Concomitant]
     Dosage: 50 mg, UNK
  3. NEXIUM                             /01479302/ [Concomitant]
     Dosage: 20 mg, UNK
  4. TRAMADOL HCL [Concomitant]
     Dosage: 50 mg, UNK
  5. GABAPENTIN [Concomitant]
     Dosage: 100 mg, UNK
  6. HYDROXYCHLOROQUINE [Concomitant]
     Dosage: 200 mg, UNK
  7. DYNACIRC [Concomitant]
     Dosage: 2.5 mg, UNK
  8. ACTONEL [Concomitant]
     Dosage: 5 mg, UNK
  9. RESTASIS [Concomitant]
     Dosage: UNK
  10. VITAMIN D3 [Concomitant]
     Dosage: UNK
  11. FLAXSEED OIL [Concomitant]
     Dosage: UNK
  12. MAGNESIUM [Concomitant]
     Dosage: 300 mg, UNK
  13. CALCIUM 500+D [Concomitant]
     Dosage: UNK IU, UNK
  14. MULTIVITAMIN                       /00097801/ [Concomitant]
     Dosage: UNK
  15. ESTER C                            /00008001/ [Concomitant]
     Dosage: UNK
  16. ECHINACEA                          /01323501/ [Concomitant]
     Dosage: UNK
  17. LYSINE [Concomitant]
     Dosage: 500 mg, UNK

REACTIONS (1)
  - Pruritus [Unknown]
